FAERS Safety Report 7493975-8 (Version None)
Quarter: 2011Q2

REPORT INFORMATION
  Report Type: 
  Country: None (occurrence: None)
  Receive Date: 20110520
  Receipt Date: 20110516
  Transmission Date: 20111010
  Serious: Yes (Other)
  Sender: FDA-Public Use
  Company Number: DE-ROCHE-777942

PATIENT
  Age: 72 Year
  Sex: Female
  Weight: 64 kg

DRUGS (2)
  1. AVASTIN [Suspect]
     Route: 042
     Dates: start: 20110404, end: 20110513
  2. PAMIFOS [Suspect]
     Route: 042
     Dates: start: 20100315, end: 20110513

REACTIONS (1)
  - OSTEONECROSIS OF JAW [None]
